FAERS Safety Report 12422778 (Version 2)
Quarter: 2016Q2

REPORT INFORMATION
  Report Type: Spontaneous
  Country: GB (occurrence: GB)
  Receive Date: 20160601
  Receipt Date: 20160614
  Transmission Date: 20160815
  Serious: Yes (Other)
  Sender: FDA-Public Use
  Company Number: GB-009507513-1606GBR000049

PATIENT
  Age: 3 Year
  Sex: Male

DRUGS (3)
  1. ASPIRIN. [Suspect]
     Active Substance: ASPIRIN
     Indication: LIVER TRANSPLANT
     Dosage: 40 MG, (40 MG, 1 IN 1D)
     Route: 048
     Dates: start: 20160421, end: 20160511
  2. DIPYRIDAMOLE. [Suspect]
     Active Substance: DIPYRIDAMOLE
     Indication: LIVER TRANSPLANT
     Dosage: DAILY DOSE: 150 MG (50 MG, 3 IN 1 D)
     Route: 048
     Dates: start: 20160421, end: 20160511
  3. DEXAMETHASONE. [Suspect]
     Active Substance: DEXAMETHASONE
     Indication: EXTUBATION
     Dosage: DAILY DOSE: 14 MG (3.5 MG, 4 IN 1D)
     Route: 042
     Dates: start: 20160509, end: 20160510

REACTIONS (1)
  - Gastrointestinal haemorrhage [Recovering/Resolving]

NARRATIVE: CASE EVENT DATE: 20160510
